FAERS Safety Report 5115606-4 (Version None)
Quarter: 2006Q3

REPORT INFORMATION
  Report Type: 
  Country: None (occurrence: None)
  Receive Date: 20060925
  Receipt Date: 20060912
  Transmission Date: 20061208
  Serious: Yes (Hospitalization, Other)
  Sender: FDA-Public Use
  Company Number: 430031M06USA

PATIENT
  Age: 68 Year
  Sex: Male
  Weight: 67.1 kg

DRUGS (22)
  1. NOVANTRONE [Suspect]
     Indication: ACUTE MYELOID LEUKAEMIA
     Dates: start: 20060519
  2. CEP-701 (INVESTIGATIONAL DRUG) [Suspect]
     Dosage: 80 MG, 2 IN 1 DAYS, ORAL
     Route: 048
     Dates: start: 20060525, end: 20060528
  3. ETOPOSIDE [Suspect]
     Dates: start: 20060519
  4. CYTARABINE [Suspect]
     Dates: start: 20060519
  5. ZOSYN [Concomitant]
  6. VANCOMYCIN [Concomitant]
  7. VALTREX [Concomitant]
  8. DEXAMETHASONE               (DEXAMETHASONE SODIUM PHOSPHATE) [Concomitant]
  9. LASIX [Concomitant]
  10. DIPHENHYDRAMINE HCL [Concomitant]
  11. ACETAMINOPHEN [Concomitant]
  12. ALLOPURINOL [Concomitant]
  13. SODIUM CHLORIDE 0.9% [Concomitant]
  14. ANZEMET [Concomitant]
  15. FLUOROMETHOLONE                     (FLUOROMETHOLONE) [Concomitant]
  16. PREGABALIN (PREGABALIN) [Concomitant]
  17. CASPOFUNGIN ACETATE       (CASPOFUNGIN ACETATE) [Concomitant]
  18. VITAMIN SUPPLEMENTS (ASCORIC ACID) [Concomitant]
  19. AMBISONE B (AMPHOTERICIN N) [Concomitant]
  20. MORPHINE [Concomitant]
  21. PIPERACILLIN TAZOBACTAM (PIPERACILLIN W/TAZOBACTAM) [Concomitant]
  22. ACYCLOVIR [Concomitant]

REACTIONS (3)
  - CONDITION AGGRAVATED [None]
  - ENTEROCOCCAL BACTERAEMIA [None]
  - MUCOSAL INFLAMMATION [None]
